FAERS Safety Report 8143179-0 (Version None)
Quarter: 2012Q1

REPORT INFORMATION
  Report Type: 
  Country: None (occurrence: None)
  Receive Date: 20120217
  Receipt Date: 20120214
  Transmission Date: 20120608
  Serious: Yes (Other)
  Sender: FDA-Public Use
  Company Number: US-PFIZER INC-2012040074

PATIENT
  Sex: Female
  Weight: 88.435 kg

DRUGS (6)
  1. PLAVIX [Concomitant]
     Dosage: UNK
  2. NEURONTIN [Concomitant]
     Dosage: UNK
  3. LOTREL [Concomitant]
     Indication: HYPERTENSION
     Dosage: UNK
  4. LYRICA [Suspect]
     Indication: NEUROPATHY PERIPHERAL
     Dosage: 75 MG, 2X/DAY
     Route: 048
     Dates: end: 20120201
  5. CELEBREX [Concomitant]
     Dosage: UNK
  6. COREG [Concomitant]
     Dosage: UNK

REACTIONS (3)
  - NEUROPATHY PERIPHERAL [None]
  - CONTUSION [None]
  - PARAESTHESIA [None]
